FAERS Safety Report 5755762-8 (Version None)
Quarter: 2008Q2

REPORT INFORMATION
  Report Type: 
  Country: None (occurrence: None)
  Receive Date: 20080530
  Receipt Date: 20080530
  Transmission Date: 20081010
  Serious: Yes (Hospitalization)
  Sender: FDA-Public Use
  Company Number: None

PATIENT
  Age: 84 Year
  Sex: Male
  Weight: 74.8 kg

DRUGS (2)
  1. TERAZOSIN HCL [Suspect]
     Indication: BENIGN PROSTATIC HYPERPLASIA
     Dosage: 10 MG         HS          PO
     Route: 048
     Dates: start: 20050415, end: 20080430
  2. TERAZOSIN HCL [Suspect]
     Indication: HYPERTENSION
     Dosage: 10 MG         HS          PO
     Route: 048
     Dates: start: 20050415, end: 20080430

REACTIONS (1)
  - SYNCOPE [None]
